FAERS Safety Report 22203789 (Version 5)
Quarter: 2023Q2

REPORT INFORMATION
  Report Type: Report from Study
  Country: CA (occurrence: CA)
  Receive Date: 20230412
  Receipt Date: 20230616
  Transmission Date: 20230721
  Serious: Yes (Other)
  Sender: FDA-Public Use
  Company Number: CA-KOREA IPSEN Pharma-2022-15997

PATIENT
  Age: 86 Year
  Sex: Female

DRUGS (3)
  1. LANREOTIDE ACETATE [Suspect]
     Active Substance: LANREOTIDE ACETATE
     Indication: Gastroenteropancreatic neuroendocrine tumour disease
     Dosage: 120 MG, EVERY 4 WEEKS
     Route: 058
     Dates: start: 20190718
  2. OLANZAPINE [Concomitant]
     Active Substance: OLANZAPINE
  3. SELODIPINE [Concomitant]
     Dosage: 2.5 MG DAILY

REACTIONS (14)
  - Fall [Not Recovered/Not Resolved]
  - Skin laceration [Not Recovered/Not Resolved]
  - Skin laceration [Not Recovered/Not Resolved]
  - Nephrolithiasis [Unknown]
  - Loss of consciousness [Recovered/Resolved]
  - Dizziness [Not Recovered/Not Resolved]
  - Memory impairment [Not Recovered/Not Resolved]
  - Fall [Unknown]
  - Contusion [Recovering/Resolving]
  - Orthostatic hypotension [Unknown]
  - Lip injury [Recovered/Resolved]
  - Vitamin D decreased [Not Recovered/Not Resolved]
  - Epistaxis [Not Recovered/Not Resolved]
  - Ear disorder [Unknown]

NARRATIVE: CASE EVENT DATE: 20220530
